FAERS Safety Report 6749525-4 (Version None)
Quarter: 2010Q2

REPORT INFORMATION
  Report Type: 
  Country: None (occurrence: None)
  Receive Date: 20100527
  Receipt Date: 20100527
  Transmission Date: 20101027
  Serious: Yes (Hospitalization)
  Sender: FDA-Public Use
  Company Number: None

PATIENT
  Age: 74 Year
  Sex: Female
  Weight: 95.2554 kg

DRUGS (7)
  1. RISPERDAL [Suspect]
     Indication: DEMENTIA
     Dosage: 0.5
     Dates: start: 20100511
  2. RISPERDAL [Suspect]
     Indication: INSOMNIA
     Dosage: 0.5
     Dates: start: 20100511
  3. RISPERDAL [Suspect]
     Indication: DEMENTIA
     Dosage: 0.5
     Dates: start: 20100512
  4. RISPERDAL [Suspect]
     Indication: INSOMNIA
     Dosage: 0.5
     Dates: start: 20100512
  5. RISPERDAL [Suspect]
     Indication: DEMENTIA
     Dosage: 0.5
     Dates: start: 20100513
  6. RISPERDAL [Suspect]
     Indication: INSOMNIA
     Dosage: 0.5
     Dates: start: 20100513
  7. RISPERDAL [Suspect]

REACTIONS (6)
  - ABASIA [None]
  - ACTIVITIES OF DAILY LIVING IMPAIRED [None]
  - BLOOD POTASSIUM DECREASED [None]
  - DEHYDRATION [None]
  - DEPRESSED LEVEL OF CONSCIOUSNESS [None]
  - MOVEMENT DISORDER [None]
